FAERS Safety Report 8971004 (Version 1)
Quarter: 2012Q4

REPORT INFORMATION
  Report Type: 
  Country: US (occurrence: US)
  Receive Date: 20121218
  Receipt Date: 20121218
  Transmission Date: 20130627
  Serious: No
  Sender: FDA-Public Use
  Company Number: US-BRISTOL-MYERS SQUIBB COMPANY-17026592

PATIENT

DRUGS (3)
  1. ABILIFY [Suspect]
  2. EMSAM [Suspect]
  3. LAMICTAL [Suspect]

REACTIONS (1)
  - Blood creatine phosphokinase increased [Unknown]
